FAERS Safety Report 18617883 (Version 2)
Quarter: 2020Q4

REPORT INFORMATION
  Report Type: Spontaneous
  Country: US (occurrence: US)
  Receive Date: 20201215
  Receipt Date: 20201218
  Transmission Date: 20210114
  Serious: Yes (Hospitalization)
  Sender: FDA-Public Use
  Company Number: US-BRISTOL-MYERS SQUIBB COMPANY-BMS-2020-103343

PATIENT
  Age: 70 Year
  Sex: Male
  Weight: 99.79 kg

DRUGS (1)
  1. COUMADIN [Suspect]
     Active Substance: WARFARIN SODIUM
     Indication: ATRIAL FIBRILLATION
     Dosage: INITIALLY IT WAS 3 MG (4DAYS A WEEK) A DAY OR 2 MG A DAY. LAST SEVERAL YEARS IT HAS BEEN 3 MG DAILY
     Route: 048
     Dates: start: 199612

REACTIONS (3)
  - Drug interaction [Unknown]
  - Epistaxis [Unknown]
  - Hospitalisation [Unknown]

NARRATIVE: CASE EVENT DATE: 202006
